FAERS Safety Report 23350579 (Version 1)
Quarter: 2023Q4

REPORT INFORMATION
  Report Type: Spontaneous
  Country: US (occurrence: None)
  Receive Date: 20231228
  Receipt Date: 20231228
  Transmission Date: 20240110
  Serious: No
  Sender: FDA-Public Use
  Company Number: None

PATIENT
  Age: 75 Year
  Sex: Male

DRUGS (2)
  1. JAKAFI [Suspect]
     Active Substance: RUXOLITINIB
     Dosage: OTHER FREQUENCY : 1 TAB M-W-F;?
     Route: 048
     Dates: start: 20230221
  2. JAKAFI [Concomitant]
     Active Substance: RUXOLITINIB
     Dates: start: 20230221

REACTIONS (2)
  - Graft versus host disease [None]
  - Therapy interrupted [None]

NARRATIVE: CASE EVENT DATE: 20231228
